FAERS Safety Report 14239396 (Version 1)
Quarter: 2017Q4

REPORT INFORMATION
  Report Type: Spontaneous
  Country: US (occurrence: US)
  Receive Date: 20171127
  Receipt Date: 20171127
  Transmission Date: 20180321
  Serious: Yes (Disabling)
  Sender: FDA-Public Use
  Company Number: None

PATIENT
  Sex: Female
  Weight: 67.5 kg

DRUGS (8)
  1. CYMBALTA [Concomitant]
     Active Substance: DULOXETINE HYDROCHLORIDE
  2. METOPROLOL. [Concomitant]
     Active Substance: METOPROLOL
  3. VANCOMYACIN [Suspect]
     Active Substance: VANCOMYCIN
     Indication: CATARACT OPERATION
     Dates: start: 20170605, end: 20170605
  4. ROPENERAL [Concomitant]
  5. LIPITOR [Concomitant]
     Active Substance: ATORVASTATIN CALCIUM
  6. LISINOPRIL. [Concomitant]
     Active Substance: LISINOPRIL
  7. PUMMICORT [Concomitant]
  8. BABY ASPIRIN LOW DOSE [Concomitant]

REACTIONS (2)
  - Post procedural complication [None]
  - Retinal vein occlusion [None]

NARRATIVE: CASE EVENT DATE: 20170605
